FAERS Safety Report 16549301 (Version 1)
Quarter: 2019Q3

REPORT INFORMATION
  Report Type: Report from Study
  Country: US (occurrence: US)
  Receive Date: 20190709
  Receipt Date: 20190709
  Transmission Date: 20191004
  Serious: No
  Sender: FDA-Public Use
  Company Number: PHEH2019US028254

PATIENT
  Age: 49 Year
  Sex: Female

DRUGS (2)
  1. COSENTYX [Suspect]
     Active Substance: SECUKINUMAB
     Indication: PSORIASIS
  2. COSENTYX [Suspect]
     Active Substance: SECUKINUMAB
     Indication: PSORIATIC ARTHROPATHY
     Dosage: 150 MG (WEEK 0, 1, 2, 3, AND 4 THEN EVERY 4 WEEKS AFTER) QW
     Route: 058
     Dates: start: 20190613

REACTIONS (3)
  - Stomatitis [Unknown]
  - Blister [Unknown]
  - Pruritus [Unknown]
